FAERS Safety Report 5209071-6 (Version None)
Quarter: 2007Q1

REPORT INFORMATION
  Report Type: 
  Country: None (occurrence: None)
  Receive Date: 20070116
  Receipt Date: 20070111
  Transmission Date: 20070707
  Serious: Yes (Life-Threatening)
  Sender: FDA-Public Use
  Company Number: 2007CG00090

PATIENT
  Age: 68 Year
  Sex: Male

DRUGS (3)
  1. OMEPRAZOLE [Suspect]
  2. DIAMICRON [Suspect]
  3. FORLAX [Suspect]

REACTIONS (1)
  - HYPOGLYCAEMIC COMA [None]
